FAERS Safety Report 7712237-4 (Version None)
Quarter: 2011Q3

REPORT INFORMATION
  Report Type: 
  Country: None (occurrence: None)
  Receive Date: 20110826
  Receipt Date: 20110822
  Transmission Date: 20111222
  Serious: Yes (Other)
  Sender: FDA-Public Use
  Company Number: US-PFIZER INC-2011011190

PATIENT
  Sex: Female

DRUGS (4)
  1. PRISTIQ [Suspect]
     Indication: HORMONE LEVEL ABNORMAL
  2. PRISTIQ [Suspect]
     Indication: DEPRESSION
     Dosage: 50 MG, 1X/DAY
     Route: 048
     Dates: start: 20091201, end: 20110701
  3. PREMPRO [Suspect]
     Dosage: UNK
     Route: 048
  4. PRISTIQ [Suspect]
     Indication: ANXIETY

REACTIONS (10)
  - ANXIETY [None]
  - BALANCE DISORDER [None]
  - DIZZINESS [None]
  - NAUSEA [None]
  - MALAISE [None]
  - DRUG DEPENDENCE [None]
  - BLOOD CHOLESTEROL INCREASED [None]
  - DRUG INEFFECTIVE [None]
  - DRUG WITHDRAWAL SYNDROME [None]
  - ALOPECIA [None]
